FAERS Safety Report 9438986 (Version 1)
Quarter: 2013Q3

REPORT INFORMATION
  Report Type: Spontaneous
  Country: DE (occurrence: DE)
  Receive Date: 20130802
  Receipt Date: 20130802
  Transmission Date: 20140515
  Serious: Yes (Other)
  Sender: FDA-Public Use
  Company Number: GXKR2013DE002570

PATIENT
  Age: 59 Year
  Sex: Male

DRUGS (1)
  1. QUETIAPINE [Suspect]
     Indication: AGITATED DEPRESSION
     Dosage: 400 MG/DAY
     Route: 048
     Dates: start: 20130611, end: 20130625

REACTIONS (4)
  - Colitis ulcerative [Recovered/Resolved]
  - Insomnia [Recovered/Resolved]
  - Agitation [Recovered/Resolved]
  - Drug effect decreased [Unknown]
